FAERS Safety Report 8576081 (Version 3)
Quarter: 2012Q4

REPORT INFORMATION
  Report Type: 
  Country: IT (occurrence: JP)
  Receive Date: 20120523
  Receipt Date: 20120903
  Transmission Date: 20130627
  Serious: Yes (Death, Disabling)
  Sender: FDA-Public Use
  Company Number: JP-BAYER-2012-048613

PATIENT
  Age: 78 Year
  Sex: Male
  Weight: 56 kg

DRUGS (22)
  1. MAGNEVIST [Suspect]
     Indication: METASTASES TO LYMPH NODES
     Dosage: 10 ml, ONCE
     Route: 042
     Dates: start: 20080729, end: 20080729
  2. PROHANCE [Suspect]
     Indication: NUCLEAR MAGNETIC RESONANCE IMAGING BRAIN
     Dosage: 26 ml, ONCE
     Route: 042
     Dates: start: 20080717, end: 20080717
  3. FLOMOX [Concomitant]
     Dosage: UNK
     Dates: start: 20080709, end: 20080729
  4. LOXONIN [Concomitant]
     Dosage: UNK
     Route: 048
     Dates: start: 20080709, end: 20080729
  5. DIGOXIN [Concomitant]
     Indication: ARRHYTHMIA
     Dosage: 0.125 mg, QD
     Route: 048
     Dates: start: 200806, end: 20080729
  6. WARFARIN [Concomitant]
     Indication: ARRHYTHMIA
     Dosage: 2 mg, UNK
     Route: 048
     Dates: end: 20080729
  7. CELESTAMINE [Concomitant]
     Indication: ARRHYTHMIA
     Dosage: UNK
     Route: 048
     Dates: end: 20080729
  8. SELBEX [Concomitant]
     Indication: ARRHYTHMIA
     Dosage: UNK
     Route: 048
     Dates: end: 20080729
  9. ALLELOCK [Concomitant]
     Dosage: UNK
     Dates: start: 20080712, end: 20080729
  10. LENDORMIN [Concomitant]
     Dosage: UNK
     Route: 048
     Dates: start: 20080715, end: 20080812
  11. ATARAX-P [Concomitant]
     Dosage: UNK
     Route: 048
     Dates: start: 20080716, end: 20080812
  12. ADALAT CR [Concomitant]
     Dosage: UNK
     Route: 048
     Dates: start: 20080801, end: 20080812
  13. OMEPRAL [Concomitant]
     Dosage: UNK
     Route: 048
     Dates: start: 20080802, end: 20080816
  14. OMEPRAL [Concomitant]
     Dosage: UNK
     Route: 030
     Dates: start: 20080802, end: 20080807
  15. LASIX [Concomitant]
     Dosage: UNK
     Route: 042
     Dates: start: 20080730
  16. STRONG NEO-MINOPHAGEN C [Concomitant]
     Indication: ERYTHEMA MULTIFORME
     Dosage: UNK
     Dates: start: 20080709, end: 20080728
  17. NEUROTROPIN [ORGAN LYSATE, STANDARDIZED] [Concomitant]
     Indication: ERYTHEMA MULTIFORME
     Dosage: UNK
     Dates: start: 20080709, end: 20080728
  18. UNASYN [Concomitant]
     Dosage: UNK
     Route: 048
     Dates: start: 20080802, end: 20080806
  19. ANTEBATE [Concomitant]
     Indication: ERYTHEMA MULTIFORME
  20. ZEFNART [Concomitant]
     Indication: ERYTHEMA MULTIFORME
  21. METFORMIN HYDROCHLORIDE [Concomitant]
  22. SG [APRONAL,CAFFEINE,PARACETAMOL,PROPYPHENAZONE] [Concomitant]
     Indication: ERYTHEMA MULTIFORME

REACTIONS (6)
  - Nephrogenic systemic fibrosis [None]
  - Joint range of motion decreased [None]
  - Gait disturbance [None]
  - Pigmentation disorder [None]
  - Skin induration [None]
  - Blood creatinine increased [None]
